FAERS Safety Report 14672828 (Version 1)
Quarter: 2018Q1

REPORT INFORMATION
  Report Type: Spontaneous
  Country: US (occurrence: US)
  Receive Date: 20180323
  Receipt Date: 20180323
  Transmission Date: 20180509
  Serious: Yes (Hospitalization)
  Sender: FDA-Public Use
  Company Number: US-CIPLA LTD.-2018US12605

PATIENT

DRUGS (5)
  1. OMBITASVIR [Suspect]
     Active Substance: OMBITASVIR
     Indication: HEPATIC CIRRHOSIS
     Dosage: UNK
     Route: 065
  2. RIBAVIRIN. [Suspect]
     Active Substance: RIBAVIRIN
     Indication: HEPATIC CIRRHOSIS
     Dosage: UNK
     Route: 065
  3. PARITAPREVIR [Suspect]
     Active Substance: PARITAPREVIR
     Indication: HEPATIC CIRRHOSIS
     Dosage: UNK
     Route: 065
  4. RITONAVIR. [Suspect]
     Active Substance: RITONAVIR
     Indication: HEPATIC CIRRHOSIS
     Dosage: UNK
     Route: 065
  5. DASABUVIR [Suspect]
     Active Substance: DASABUVIR
     Indication: HEPATIC CIRRHOSIS
     Dosage: UNK
     Route: 065

REACTIONS (2)
  - Hepatotoxicity [Recovered/Resolved]
  - Liver injury [Recovered/Resolved]
